FAERS Safety Report 8507216-3 (Version None)
Quarter: 2012Q3

REPORT INFORMATION
  Report Type: 
  Country: None (occurrence: None)
  Receive Date: 20120712
  Receipt Date: 20120704
  Transmission Date: 20120928
  Serious: Yes (Hospitalization, Other)
  Sender: FDA-Public Use
  Company Number: GB-ABBOTT-12P-167-0929434-00

PATIENT
  Age: 50 Year
  Sex: Female

DRUGS (5)
  1. CLOZARIL [Suspect]
     Route: 048
  2. VALPROATE SODIUM [Suspect]
     Indication: GRAND MAL CONVULSION
  3. FLUOXETINE [Concomitant]
     Indication: PRODUCT USED FOR UNKNOWN INDICATION
  4. VALPROATE SODIUM [Suspect]
  5. CLOZARIL [Suspect]
     Indication: SCHIZOPHRENIA
     Route: 048
     Dates: start: 20111208

REACTIONS (7)
  - DYSKINESIA [None]
  - MYOCLONUS [None]
  - ATAXIA [None]
  - GRAND MAL CONVULSION [None]
  - NEUTROPHIL COUNT DECREASED [None]
  - DIZZINESS [None]
  - WHITE BLOOD CELL COUNT DECREASED [None]
